FAERS Safety Report 22101901 (Version 2)
Quarter: 2023Q1

REPORT INFORMATION
  Report Type: Spontaneous
  Country: JP (occurrence: JP)
  Receive Date: 20230316
  Receipt Date: 20230329
  Transmission Date: 20230418
  Serious: Yes (Hospitalization)
  Sender: FDA-Public Use
  Company Number: JP-CHEPLA-2023003256

PATIENT
  Age: 72 Year
  Sex: Male

DRUGS (7)
  1. GANCICLOVIR [Suspect]
     Active Substance: GANCICLOVIR
     Indication: Colitis ulcerative
     Dosage: IV DRIP
     Route: 042
  2. GANCICLOVIR [Suspect]
     Active Substance: GANCICLOVIR
     Indication: Cytomegalovirus enterocolitis
     Dosage: IV DRIP
     Route: 042
  3. PREDNISOLONE [Concomitant]
     Active Substance: PREDNISOLONE
  4. CEFMETAZOLE SODIUM [Concomitant]
     Active Substance: CEFMETAZOLE SODIUM
  5. MESALAMINE [Concomitant]
     Active Substance: MESALAMINE
  6. INFLIXIMAB [Concomitant]
     Active Substance: INFLIXIMAB
  7. GOLIMUMAB [Concomitant]
     Active Substance: GOLIMUMAB

REACTIONS (2)
  - Septic shock [Unknown]
  - Product use in unapproved indication [Unknown]
